FAERS Safety Report 24112830 (Version 5)
Quarter: 2025Q1

REPORT INFORMATION
  Report Type: Spontaneous
  Country: US (occurrence: US)
  Receive Date: 20240719
  Receipt Date: 20250203
  Transmission Date: 20250409
  Serious: No
  Sender: PFIZER
  Company Number: US-SEATTLE GENETICS-2024SGN05319

PATIENT
  Age: 65 Year
  Sex: Female

DRUGS (2)
  1. TUKYSA [Suspect]
     Active Substance: TUCATINIB
     Indication: Colon cancer
  2. TUKYSA [Suspect]
     Active Substance: TUCATINIB
     Dosage: 150MG, 2 TABLETS TWICE A DAY/2 150MG TABLETS, TWICE A DAY; ORALLY
     Route: 048
     Dates: start: 202403

REACTIONS (5)
  - Off label use [Unknown]
  - Seasonal allergy [Unknown]
  - Condition aggravated [Unknown]
  - Diarrhoea [Unknown]
  - Rhinorrhoea [Unknown]
